FAERS Safety Report 17679363 (Version 1)
Quarter: 2020Q2

REPORT INFORMATION
  Report Type: Spontaneous
  Country: JP (occurrence: JP)
  Receive Date: 20200417
  Receipt Date: 20200417
  Transmission Date: 20200714
  Serious: Yes (Other)
  Sender: FDA-Public Use
  Company Number: JP-PFIZER INC-2020154155

PATIENT
  Age: 80 Year
  Sex: Male
  Weight: 55 kg

DRUGS (5)
  1. CEFAZOLIN [Suspect]
     Active Substance: CEFAZOLIN
     Dosage: UNK
  2. AMPICILLIN SODIUM/SULBACTAM SODIUM [Suspect]
     Active Substance: AMPICILLIN SODIUM\SULBACTAM SODIUM
     Dosage: UNK
  3. LOXOPROFEN [Suspect]
     Active Substance: LOXOPROFEN
     Dosage: UNK
  4. CEFCAPENE [Suspect]
     Active Substance: CEFCAPENE
     Dosage: UNK
  5. MINOMYCIN [Suspect]
     Active Substance: MINOCYCLINE HYDROCHLORIDE
     Indication: RICKETTSIOSIS
     Dosage: UNK

REACTIONS (6)
  - Drug eruption [Unknown]
  - Pruritus [Unknown]
  - Pyrexia [Unknown]
  - Miliaria [Unknown]
  - Pain [Unknown]
  - Erythema [Unknown]
